FAERS Safety Report 8295893-4 (Version None)
Quarter: 2012Q2

REPORT INFORMATION
  Report Type: 
  Country: None (occurrence: None)
  Receive Date: 20120418
  Receipt Date: 20120406
  Transmission Date: 20120825
  Serious: Yes (Hospitalization)
  Sender: FDA-Public Use
  Company Number: JP-VERTEX PHARMACEUTICALS INC.-AE-2012-005204

PATIENT
  Age: 70 Year
  Sex: Male

DRUGS (9)
  1. RIBAVIRIN [Concomitant]
     Indication: HEPATITIS C
     Route: 048
     Dates: start: 20120216, end: 20120310
  2. PEGINTERFERON ALFA-2B [Concomitant]
     Indication: HEPATITIS C
     Route: 051
     Dates: start: 20120216, end: 20120308
  3. UBIRON [Concomitant]
     Route: 048
     Dates: start: 20120329
  4. FAMOTIDINE D [Concomitant]
     Route: 048
     Dates: start: 20120216, end: 20120224
  5. PEGINTERFERON ALFA-2B [Concomitant]
     Route: 051
     Dates: start: 20120323
  6. TELAVIC (TELAPREVIR) [Suspect]
     Indication: HEPATITIS C
     Route: 048
     Dates: start: 20120216, end: 20120310
  7. MIYA BM [Concomitant]
     Route: 048
     Dates: start: 20120316
  8. NESINA [Concomitant]
     Route: 048
     Dates: end: 20120229
  9. DIOVAN [Concomitant]
     Route: 048

REACTIONS (3)
  - VOMITING [None]
  - DECREASED APPETITE [None]
  - NAUSEA [None]
